FAERS Safety Report 8089289-8 (Version None)
Quarter: 2012Q1

REPORT INFORMATION
  Report Type: 
  Country: None (occurrence: None)
  Receive Date: 20120128
  Receipt Date: 20110629
  Transmission Date: 20120608
  Serious: No
  Sender: FDA-Public Use
  Company Number: US-ABBOTT-11P-163-0719286-00

PATIENT
  Sex: Female
  Weight: 95.34 kg

DRUGS (10)
  1. DICYCLOMINE [Concomitant]
     Indication: PRODUCT USED FOR UNKNOWN INDICATION
  2. METHOTREXATE [Concomitant]
     Indication: CROHN'S DISEASE
  3. SEROQUEL [Concomitant]
     Indication: ANXIETY DISORDER
  4. DOXEPIN [Concomitant]
     Indication: PRODUCT USED FOR UNKNOWN INDICATION
  5. HYDROXYZINE [Concomitant]
     Indication: ANXIETY DISORDER
  6. VITAMIN D [Concomitant]
     Indication: PRODUCT USED FOR UNKNOWN INDICATION
  7. HYDROCHLOROTHIAZIDE [Concomitant]
     Indication: MYOCARDIAL INFARCTION
  8. LEXAPRO [Concomitant]
     Indication: ANXIETY DISORDER
  9. HUMIRA [Suspect]
     Indication: CROHN'S DISEASE
     Dates: start: 20110323
  10. LOVASTATIN [Concomitant]
     Indication: BLOOD CHOLESTEROL

REACTIONS (3)
  - ABDOMINAL PAIN UPPER [None]
  - HYPERAESTHESIA [None]
  - STRESS [None]
